FAERS Safety Report 21033231 (Version 1)
Quarter: 2022Q3

REPORT INFORMATION
  Report Type: Spontaneous
  Country: GB (occurrence: GB)
  Receive Date: 20220701
  Receipt Date: 20220701
  Transmission Date: 20221027
  Serious: Yes (Other)
  Sender: FDA-Public Use
  Company Number: GB-SUN PHARMACEUTICAL INDUSTRIES LTD-2022RR-342397

PATIENT
  Age: 67 Year
  Sex: Female

DRUGS (6)
  1. OCTREOTIDE [Suspect]
     Active Substance: OCTREOTIDE
     Indication: Intestinal obstruction
     Dosage: 500 MICROGRAM, DAILY
     Route: 065
  2. LEVOMEPROMAZINE [Suspect]
     Active Substance: LEVOMEPROMAZINE
     Indication: Intestinal obstruction
     Dosage: 18.75 MILLIGRAM, DAILY
     Route: 065
  3. OXYCODONE [Suspect]
     Active Substance: OXYCODONE
     Indication: Intestinal obstruction
     Dosage: 15 MILLIGRAM, DAILY
     Route: 065
  4. DEXAMETHASONE [Suspect]
     Active Substance: DEXAMETHASONE
     Indication: Intestinal obstruction
     Dosage: 6.6 MILLIGRAM, DAILY
     Route: 065
  5. BUTYLSCOPOLAMINE BROMIDE [Suspect]
     Active Substance: BUTYLSCOPOLAMINE BROMIDE
     Indication: Intestinal obstruction
     Dosage: 180 MILLIGRAM, DAILY
     Route: 065
  6. ESOMEPRAZOLE [Concomitant]
     Active Substance: ESOMEPRAZOLE
     Indication: Obstruction gastric

REACTIONS (1)
  - Upper gastrointestinal haemorrhage [Unknown]
